FAERS Safety Report 6792568-5 (Version None)
Quarter: 2010Q2

REPORT INFORMATION
  Report Type: 
  Country: None (occurrence: None)
  Receive Date: 20100624
  Receipt Date: 20080815
  Transmission Date: 20101027
  Serious: Yes (Other)
  Sender: FDA-Public Use
  Company Number: US-PFIZER INC-2008068563

PATIENT
  Sex: Male

DRUGS (3)
  1. GEODON [Suspect]
     Dates: start: 20080701
  2. COGENTIN [Suspect]
  3. ZYPREXA [Concomitant]
     Dates: end: 20080801

REACTIONS (3)
  - DYSTONIA [None]
  - TARDIVE DYSKINESIA [None]
  - TREMOR [None]
